FAERS Safety Report 4750093-7 (Version None)
Quarter: 2005Q3

REPORT INFORMATION
  Report Type: 
  Country: None (occurrence: None)
  Receive Date: 20050822
  Receipt Date: 20050804
  Transmission Date: 20060218
  Serious: Yes (Hospitalization)
  Sender: FDA-Public Use
  Company Number: 216896

PATIENT
  Age: 73 Year
  Sex: Male
  Weight: 95.2 kg

DRUGS (5)
  1. AVASTIN [Suspect]
     Indication: COLORECTAL CANCER METASTATIC
     Dosage: 475 MG, Q2W, INTRAVENOUS
     Route: 042
     Dates: start: 20050510, end: 20050803
  2. AVASTIN [Suspect]
  3. FLUOROURACIL [Suspect]
     Indication: COLORECTAL CANCER METASTATIC
     Dosage: 1075 MG, 1/WEEK,
     Dates: start: 20050510
  4. FOLINIC ACID [Suspect]
     Indication: COLORECTAL CANCER METASTATIC
     Dosage: 1080 MG, 1/WEEK,
     Dates: start: 20050510
  5. ONDANSETRON (ONDANSETRON) [Suspect]
     Indication: COLORECTAL CANCER METASTATIC
     Dosage: 8 MG, 1/WEEK,
     Dates: start: 20050510

REACTIONS (10)
  - BLOOD POTASSIUM DECREASED [None]
  - C-REACTIVE PROTEIN INCREASED [None]
  - DEHYDRATION [None]
  - DIARRHOEA [None]
  - FATIGUE [None]
  - HYPERTENSION [None]
  - LETHARGY [None]
  - MYOCARDIAL ISCHAEMIA [None]
  - OXYGEN SATURATION DECREASED [None]
  - PYREXIA [None]
